FAERS Safety Report 7508767-0 (Version None)
Quarter: 2011Q2

REPORT INFORMATION
  Report Type: 
  Country: None (occurrence: None)
  Receive Date: 20110527
  Receipt Date: 20110114
  Transmission Date: 20111010
  Serious: No
  Sender: FDA-Public Use
  Company Number: A0907418A

PATIENT
  Age: 25 Year
  Sex: Female

DRUGS (5)
  1. ALLERGY SHOT [Concomitant]
  2. VENTOLIN [Suspect]
     Dosage: 90MCG UNKNOWN
     Route: 065
     Dates: start: 20100908, end: 20101110
  3. SINGULAIR [Concomitant]
  4. UNKNOWN MEDICATION [Concomitant]
  5. ADVAIR DISKUS 100/50 [Concomitant]
     Dosage: 1PUFF TWICE PER DAY

REACTIONS (1)
  - ABDOMINAL DISCOMFORT [None]
